FAERS Safety Report 7740559-X (Version None)
Quarter: 2011Q3

REPORT INFORMATION
  Report Type: 
  Country: None (occurrence: None)
  Receive Date: 20110909
  Receipt Date: 20110907
  Transmission Date: 20111222
  Serious: Yes (Hospitalization)
  Sender: FDA-Public Use
  Company Number: US-BRISTOL-MYERS SQUIBB COMPANY-16008021

PATIENT
  Age: 74 Year
  Sex: Male
  Weight: 78 kg

DRUGS (3)
  1. TAXOL [Suspect]
     Indication: NON-SMALL CELL LUNG CANCER
     Dosage: LAST DOSE ON 17AUG2011
     Dates: start: 20110720
  2. CARBOPLATIN [Suspect]
     Indication: NON-SMALL CELL LUNG CANCER
     Dosage: LAST DOSE ON 17AUG2011
     Dates: start: 20110720
  3. ERBITUX [Suspect]
     Indication: NON-SMALL CELL LUNG CANCER
     Dosage: LAST DOSE ON 17AUG2011
     Dates: start: 20110720

REACTIONS (11)
  - WHITE BLOOD CELL COUNT DECREASED [None]
  - ATRIAL FIBRILLATION [None]
  - HYPOMAGNESAEMIA [None]
  - DEHYDRATION [None]
  - WEIGHT DECREASED [None]
  - HYPOTENSION [None]
  - HYPOKALAEMIA [None]
  - PLATELET COUNT DECREASED [None]
  - HYPOCALCAEMIA [None]
  - SKIN ULCER [None]
  - ANAEMIA [None]
